FAERS Safety Report 7204486-9 (Version None)
Quarter: 2010Q4

REPORT INFORMATION
  Report Type: 
  Country: None (occurrence: None)
  Receive Date: 20101230
  Receipt Date: 20101220
  Transmission Date: 20110411
  Serious: Yes (Other)
  Sender: FDA-Public Use
  Company Number: BR-WATSON-2010-15353

PATIENT
  Age: 33 Year
  Sex: Female

DRUGS (2)
  1. PREDNISONE [Suspect]
     Indication: MIXED CONNECTIVE TISSUE DISEASE
     Dosage: UNK
  2. PREDNISONE [Suspect]
     Indication: ARTHRITIS

REACTIONS (1)
  - OSTEONECROSIS [None]
